FAERS Safety Report 8917717 (Version 1)
Quarter: 2012Q4

REPORT INFORMATION
  Report Type: Report from Study
  Country: US (occurrence: US)
  Receive Date: 20121119
  Receipt Date: 20121119
  Transmission Date: 20130627
  Serious: Yes (Other)
  Sender: FDA-Public Use
  Company Number: US-ABBOTT-12P-163-1006828-00

PATIENT
  Age: 34 None
  Sex: Female

DRUGS (7)
  1. HUMIRA [Suspect]
     Indication: RHEUMATOID ARTHRITIS
     Dates: start: 2007, end: 2008
  2. HUMIRA [Suspect]
     Indication: RHEUMATOID ARTHRITIS
     Dates: start: 2008, end: 2009
  3. HUMIRA [Suspect]
     Dosage: on hold
     Dates: start: 2009, end: 201202
  4. HUMIRA [Suspect]
     Dates: start: 20121102
  5. METHOTREXATE [Concomitant]
     Indication: RHEUMATOID ARTHRITIS
     Dates: end: 201210
  6. PREDNISONE [Concomitant]
     Indication: RHEUMATOID ARTHRITIS
  7. RELAFEN [Concomitant]
     Indication: RHEUMATOID ARTHRITIS
     Dates: end: 201202

REACTIONS (4)
  - Prolonged labour [Not Recovered/Not Resolved]
  - Premature rupture of membranes [Recovered/Resolved]
  - Premature labour [Recovered/Resolved]
  - Drug ineffective [Recovered/Resolved]
